FAERS Safety Report 18908598 (Version 3)
Quarter: 2021Q1

REPORT INFORMATION
  Report Type: Spontaneous
  Country: EC (occurrence: EC)
  Receive Date: 20210218
  Receipt Date: 20210226
  Transmission Date: 20210420
  Serious: Yes (Other)
  Sender: FDA-Public Use
  Company Number: EC-PFIZER INC-2021148983

PATIENT
  Age: 37 Year
  Sex: Female
  Weight: 64 kg

DRUGS (2)
  1. PREDNISONE. [Concomitant]
     Active Substance: PREDNISONE
     Indication: PLASMA CELL MASTITIS
     Dosage: 10 MG, DAILY (TAPERED DOSE)
     Dates: start: 201506, end: 2018
  2. METHOTREXATE SODIUM. [Suspect]
     Active Substance: METHOTREXATE SODIUM
     Indication: PLASMA CELL MASTITIS
     Dosage: 30 MG, WEEKLY (COMBINED WITH 10 MG OF PREDNISONE DAILY)
     Route: 048
     Dates: start: 201506, end: 2016

REACTIONS (9)
  - Xerophthalmia [Recovered/Resolved]
  - Xerosis [Recovered/Resolved]
  - Vomiting [Recovered/Resolved]
  - Off label use [Unknown]
  - Cough [Recovered/Resolved]
  - Nausea [Recovered/Resolved]
  - Odynophagia [Recovered/Resolved]
  - Dyspepsia [Recovered/Resolved]
  - Drug intolerance [Recovered/Resolved]

NARRATIVE: CASE EVENT DATE: 201506
